FAERS Safety Report 17160521 (Version 4)
Quarter: 2020Q1

REPORT INFORMATION
  Report Type: Spontaneous
  Country: SG (occurrence: SG)
  Receive Date: 20191216
  Receipt Date: 20200205
  Transmission Date: 20200409
  Serious: Yes (Other)
  Sender: FDA-Public Use
  Company Number: SG-BAYER-2019-227661

PATIENT
  Age: 50 Year
  Sex: Female

DRUGS (1)
  1. MIRENA [Suspect]
     Active Substance: LEVONORGESTREL
     Dosage: 20 MCG/24HR, CONT
     Route: 015
     Dates: start: 20130206, end: 20190724

REACTIONS (2)
  - Oestrogen receptor positive breast cancer [None]
  - Device use issue [Recovered/Resolved]

NARRATIVE: CASE EVENT DATE: 20180206
